FAERS Safety Report 10094278 (Version 1)
Quarter: 2014Q2

REPORT INFORMATION
  Report Type: Spontaneous
  Country: US (occurrence: None)
  Receive Date: 20140421
  Receipt Date: 20140421
  Transmission Date: 20141212
  Serious: No
  Sender: FDA-Public Use
  Company Number: None

PATIENT
  Age: 57 Year
  Sex: Male

DRUGS (1)
  1. PRAVASTATIN [Suspect]
     Indication: BLOOD CHOLESTEROL INCREASED
     Dosage: 1 PILL, AT BEDTIME, TAKEN BY MOUTH
     Dates: start: 20140321, end: 20140403

REACTIONS (4)
  - Arthralgia [None]
  - Constipation [None]
  - Joint swelling [None]
  - Ocular icterus [None]
